FAERS Safety Report 8861194 (Version 3)
Quarter: 2013Q1

REPORT INFORMATION
  Report Type: Report from Study
  Country: US (occurrence: US)
  Receive Date: 20121026
  Receipt Date: 20130206
  Transmission Date: 20140127
  Serious: Yes (Hospitalization)
  Sender: FDA-Public Use
  Company Number: US-ACTELION-A-US2012-72956

PATIENT
  Age: 60 Year
  Sex: Male

DRUGS (3)
  1. TRACLEER [Suspect]
     Indication: PULMONARY ARTERIAL HYPERTENSION
     Dosage: UNK
     Route: 048
  2. TYVASO [Suspect]
  3. SILDENAFIL [Concomitant]

REACTIONS (6)
  - Influenza [Unknown]
  - Nausea [Unknown]
  - Cough [Unknown]
  - Dyspnoea [Unknown]
  - Retching [Unknown]
  - Dry mouth [Unknown]
